FAERS Safety Report 20376199 (Version 1)
Quarter: 2022Q1

REPORT INFORMATION
  Report Type: Spontaneous
  Country: US (occurrence: US)
  Receive Date: 20220125
  Receipt Date: 20220125
  Transmission Date: 20220423
  Serious: No
  Sender: FDA-Public Use
  Company Number: US-BIOMARINAP-US-2022-140720

PATIENT
  Sex: Female

DRUGS (1)
  1. PALYNZIQ [Suspect]
     Active Substance: PEGVALIASE-PQPZ
     Indication: Phenylketonuria
     Dosage: 10 MILLIGRAM, QD
     Route: 042

REACTIONS (7)
  - Anxiety [Unknown]
  - Arthralgia [Unknown]
  - Yawning [Unknown]
  - Dyspnoea [Unknown]
  - Heart rate increased [Unknown]
  - Eructation [Unknown]
  - Chest discomfort [Unknown]
